FAERS Safety Report 13017063 (Version 1)
Quarter: 2016Q4

REPORT INFORMATION
  Report Type: Spontaneous
  Country: SE (occurrence: SE)
  Receive Date: 20161212
  Receipt Date: 20161212
  Transmission Date: 20170207
  Serious: Yes (Other)
  Sender: FDA-Public Use
  Company Number: SE-TEVA-2016-09103

PATIENT
  Age: 73 Year
  Sex: Male

DRUGS (1)
  1. CAPECITABIN ACTAVIS [Suspect]
     Active Substance: CAPECITABINE
     Indication: COLON CANCER
     Dosage: UNK
     Route: 065
     Dates: end: 20160104

REACTIONS (2)
  - Skin toxicity [Unknown]
  - Mucosal toxicity [Unknown]

NARRATIVE: CASE EVENT DATE: 20151230
